FAERS Safety Report 6870154-6 (Version None)
Quarter: 2010Q3

REPORT INFORMATION
  Report Type: 
  Country: None (occurrence: None)
  Receive Date: 20100721
  Receipt Date: 20100707
  Transmission Date: 20110219
  Serious: Yes (Death)
  Sender: FDA-Public Use
  Company Number: CN-JNJFOC-20100702893

PATIENT
  Age: 82 Year
  Sex: Male
  Weight: 65 kg

DRUGS (7)
  1. DACOGEN [Suspect]
     Indication: MYELODYSPLASTIC SYNDROME
     Dosage: 50 MG, 1 IN 1 DAY, INTRAVENOUS
     Route: 042
     Dates: start: 20100623, end: 20100627
  2. MEROPENEM [Concomitant]
  3. MOXIFLOXACIN HYDROCHLIORIDE (MOXIFLOXACIN HYDROCHLORIDE) [Concomitant]
  4. PHOSPHATIDYLCHOLINE (PHOSPHATIDYL CHOLINE) [Concomitant]
  5. PANTOPRAZOLE SODIUM [Concomitant]
  6. TROPISETRON HCL (TROPISETRON HYDROCHLORIDE) [Concomitant]
  7. ASPISOL (ACETYLSALICYLATE LYSINE) [Concomitant]

REACTIONS (8)
  - CONJUNCTIVAL HAEMORRHAGE [None]
  - CONJUNCTIVAL PALLOR [None]
  - COUGH [None]
  - DIARRHOEA [None]
  - HAEMORRHAGE [None]
  - HYPERHIDROSIS [None]
  - INFECTION [None]
  - VOMITING [None]
